FAERS Safety Report 8916243 (Version 1)
Quarter: 2012Q4

REPORT INFORMATION
  Report Type: 
  Country: FR (occurrence: FR)
  Receive Date: 20121120
  Receipt Date: 20121120
  Transmission Date: 20130627
  Serious: Yes (Other)
  Sender: FDA-Public Use
  Company Number: FR-ELI_LILLY_AND_COMPANY-FR201211001964

PATIENT
  Age: 30 Year
  Sex: Female

DRUGS (2)
  1. ZYPREXA VELOTAB [Suspect]
     Indication: BRIEF PSYCHOTIC DISORDER WITH MARKED STRESSORS
     Dosage: 5 mg, qd
     Route: 048
  2. ZYPREXA VELOTAB [Suspect]
     Dosage: 2.5 mg, qd
     Route: 048
     Dates: start: 20121030

REACTIONS (2)
  - Gestational diabetes [Unknown]
  - Exposure during pregnancy [Not Recovered/Not Resolved]
